FAERS Safety Report 23396862 (Version 4)
Quarter: 2024Q1

REPORT INFORMATION
  Report Type: Report from Study
  Country: CA (occurrence: CA)
  Receive Date: 20240112
  Receipt Date: 20240328
  Transmission Date: 20240409
  Serious: Yes (Other)
  Sender: FDA-Public Use
  Company Number: CA-JNJFOC-20230943677

PATIENT
  Age: 32 Year
  Sex: Female
  Weight: 82 kg

DRUGS (8)
  1. SIMPONI [Suspect]
     Active Substance: GOLIMUMAB
     Indication: Ankylosing spondylitis
     Route: 041
     Dates: start: 20201005
  2. SIMPONI [Suspect]
     Active Substance: GOLIMUMAB
     Route: 041
     Dates: start: 20230922
  3. SIMPONI [Suspect]
     Active Substance: GOLIMUMAB
     Route: 041
     Dates: start: 20231017
  4. SIMPONI [Suspect]
     Active Substance: GOLIMUMAB
     Route: 041
  5. SIMPONI [Suspect]
     Active Substance: GOLIMUMAB
     Route: 041
     Dates: start: 20240110
  6. SIMPONI [Suspect]
     Active Substance: GOLIMUMAB
     Route: 041
  7. SIMPONI [Suspect]
     Active Substance: GOLIMUMAB
     Route: 041
  8. PAXLOVID [Concomitant]
     Active Substance: NIRMATRELVIR\RITONAVIR

REACTIONS (12)
  - Anal fistula [Not Recovered/Not Resolved]
  - Ankylosing spondylitis [Not Recovered/Not Resolved]
  - Influenza like illness [Recovering/Resolving]
  - SARS-CoV-2 test positive [Recovering/Resolving]
  - Fatigue [Recovered/Resolved]
  - Sinusitis [Recovered/Resolved]
  - Off label use [Unknown]
  - Weight decreased [Unknown]
  - Bronchitis [Recovering/Resolving]
  - Ear infection [Recovering/Resolving]
  - Sacral pain [Not Recovered/Not Resolved]
  - Rectal discharge [Unknown]

NARRATIVE: CASE EVENT DATE: 20230801
